FAERS Safety Report 7475140-3 (Version None)
Quarter: 2011Q2

REPORT INFORMATION
  Report Type: 
  Country: None (occurrence: None)
  Receive Date: 20110512
  Receipt Date: 20110427
  Transmission Date: 20111010
  Serious: Yes (Disabling, Other)
  Sender: FDA-Public Use
  Company Number: US-ELI_LILLY_AND_COMPANY-US200910006904

PATIENT
  Sex: Male

DRUGS (12)
  1. SYNTHROID [Concomitant]
     Dosage: 50 UG, UNK
     Route: 065
  2. FORTEO [Suspect]
     Indication: OSTEOPOROSIS
     Dosage: 20 UG, DAILY (1/D)
     Route: 065
     Dates: start: 20090701
  3. FORTEO [Suspect]
     Dosage: 20 UG, DAILY (1/D)
  4. COUMADIN [Concomitant]
     Dosage: 2 MG, QD
  5. ANTIBIOTICS [Concomitant]
     Indication: STAPHYLOCOCCAL INFECTION
     Dosage: UNK, UNKNOWN
  6. FORTEO [Suspect]
  7. FORTEO [Suspect]
     Dosage: 20 UG, QD
     Route: 065
  8. OXYCONTIN [Concomitant]
     Indication: PAIN
     Dosage: UNK, UNKNOWN
     Route: 065
  9. LIPITOR [Concomitant]
     Dosage: 20 MG, QD
     Route: 065
  10. ANALGESICS [Concomitant]
     Dosage: UNK, UNKNOWN
     Route: 065
  11. THIAZIDE [Concomitant]
     Dosage: UNK, UNKNOWN
     Route: 065
     Dates: start: 20110201
  12. DOXYCYCLINE [Concomitant]
     Dosage: 100 MG, QD
     Route: 065

REACTIONS (10)
  - IMPAIRED HEALING [None]
  - SPINAL FUSION SURGERY [None]
  - ARTHRALGIA [None]
  - PELVIC FRACTURE [None]
  - HAEMATURIA [None]
  - SPINAL COMPRESSION FRACTURE [None]
  - PELVIC PAIN [None]
  - RETINAL HAEMORRHAGE [None]
  - MUSCLE INJURY [None]
  - PAIN [None]
